FAERS Safety Report 8810752 (Version 1)
Quarter: 2012Q4

REPORT INFORMATION
  Report Type: 
  Country: US (occurrence: US)
  Receive Date: 20120927
  Receipt Date: 20120927
  Transmission Date: 20130627
  Serious: No
  Sender: FDA-Public Use
  Company Number: US-PFIZER INC-2012239345

PATIENT
  Age: 35 Year
  Sex: Female
  Weight: 155.56 kg

DRUGS (6)
  1. LYRICA [Suspect]
     Indication: FIBROMYALGIA
     Dosage: 75 mg, 4x/day
     Route: 048
     Dates: start: 201110
  2. PROZAC [Concomitant]
     Dosage: 10 mg, 1x/day
  3. FLEXERIL [Concomitant]
     Dosage: 10 mg, 1x/day
  4. ATIVAN [Concomitant]
     Dosage: 1 mg, 1x/day
  5. BENTYL [Concomitant]
     Dosage: 10 mg, 1x/day
  6. TRAZODONE [Concomitant]
     Dosage: 100 mg, 1x/day

REACTIONS (1)
  - Nasopharyngitis [Recovered/Resolved]
